FAERS Safety Report 22176640 (Version 1)
Quarter: 2023Q2

REPORT INFORMATION
  Report Type: Spontaneous
  Country: US (occurrence: None)
  Receive Date: 20230404
  Receipt Date: 20230404
  Transmission Date: 20230722
  Serious: Yes (Disabling, Other)
  Sender: FDA-Public Use
  Company Number: None

PATIENT
  Age: 52 Year
  Sex: Female

DRUGS (1)
  1. SPIRONOLACTONE [Suspect]
     Active Substance: SPIRONOLACTONE
     Indication: Blood pressure abnormal
     Dosage: QUANTITY: OTHER: 30 TABLETS?
     Route: 048
     Dates: start: 20230303, end: 20230403

REACTIONS (2)
  - Hypersensitivity [None]
  - Drug-induced liver injury [None]

NARRATIVE: CASE EVENT DATE: 20230404
